FAERS Safety Report 8954271 (Version 2)
Quarter: 2013Q1

REPORT INFORMATION
  Report Type: Spontaneous
  Country: US (occurrence: US)
  Receive Date: 20121207
  Receipt Date: 20130110
  Transmission Date: 20140127
  Serious: No
  Sender: FDA-Public Use
  Company Number: US-B.I. PHARMACEUTICALS,INC./RIDGEFIELD-2012-BI-01996BP

PATIENT
  Age: 83 Year
  Sex: Female
  Weight: 102 kg

DRUGS (2)
  1. PRADAXA [Suspect]
     Indication: ATRIAL FIBRILLATION
     Dosage: 300 MG
     Route: 048
     Dates: start: 20110927
  2. DIGOXIN [Concomitant]
     Indication: ATRIAL FIBRILLATION

REACTIONS (1)
  - Gingival swelling [Not Recovered/Not Resolved]
